FAERS Safety Report 23449384 (Version 1)
Quarter: 2024Q1

REPORT INFORMATION
  Report Type: Spontaneous
  Country: US (occurrence: US)
  Receive Date: 20240129
  Receipt Date: 20240129
  Transmission Date: 20240409
  Serious: No
  Sender: FDA-Public Use
  Company Number: US-TARSUS PHARMACEUTICALS-TSP-US-2023-000097

PATIENT
  Age: 60 Year
  Sex: Female

DRUGS (5)
  1. XDEMVY [Suspect]
     Active Substance: LOTILANER
     Indication: Demodex blepharitis
     Dosage: 1 DROP, BID (INTO BOTH EYES)
     Route: 047
     Dates: start: 20231118
  2. TYRVAYA [Concomitant]
     Active Substance: VARENICLINE TARTRATE
     Indication: Product used for unknown indication
     Dosage: UNK
     Route: 065
  3. SYNTHROID [Concomitant]
     Active Substance: LEVOTHYROXINE SODIUM
     Indication: Product used for unknown indication
     Dosage: UNK
     Route: 065
  4. ESTRADIOL [Concomitant]
     Active Substance: ESTRADIOL
     Indication: Product used for unknown indication
     Dosage: UNK
     Route: 065
  5. NEOMYCIN AND POLYMYXIN B SULFATES, BACITRACIN ZINC AND HYDROCORTISONE [Concomitant]
     Active Substance: BACITRACIN ZINC\HYDROCORTISONE\NEOMYCIN SULFATE\POLYMYXIN B SULFATE
     Indication: Product used for unknown indication
     Dosage: UNK
     Route: 065

REACTIONS (1)
  - Madarosis [Unknown]

NARRATIVE: CASE EVENT DATE: 20230101
